FAERS Safety Report 8810453 (Version 1)
Quarter: 2012Q4

REPORT INFORMATION
  Report Type: 
  Country: CO (occurrence: CO)
  Receive Date: 20120927
  Receipt Date: 20120927
  Transmission Date: 20130627
  Serious: Yes (Death, Hospitalization)
  Sender: FDA-Public Use
  Company Number: CO-009507513-1209COL009823

PATIENT
  Age: 59 Year
  Sex: Female

DRUGS (3)
  1. VICTRELIS [Suspect]
     Indication: HEPATITIS C
     Dosage: 2400 mg, qd
     Route: 048
     Dates: start: 20120530
  2. PEG-INTRON [Suspect]
     Indication: HEPATITIS C
     Dosage: 80 Microgram, qw
     Route: 040
     Dates: start: 20120530
  3. RIBAVIRIN [Suspect]
     Dosage: UNK
     Dates: start: 20120530

REACTIONS (1)
  - Renal failure [Fatal]
